FAERS Safety Report 12938517 (Version 1)
Quarter: 2016Q4

REPORT INFORMATION
  Report Type: Not Available
  Country: US (occurrence: US)
  Receive Date: 20161114
  Receipt Date: 20161114
  Transmission Date: 20170207
  Serious: Yes (Other)
  Sender: FDA-Public Use
  Company Number: US-CELGENEUS-163-21880-10112402

PATIENT
  Sex: Male
  Weight: 97.61 kg

DRUGS (1)
  1. REVLIMID [Suspect]
     Active Substance: LENALIDOMIDE
     Indication: PLASMA CELL MYELOMA
     Dosage: 10 MILLIGRAM
     Route: 048
     Dates: start: 20100107, end: 20110207

REACTIONS (4)
  - Dyspnoea [Unknown]
  - Feeling jittery [Unknown]
  - Venous thrombosis limb [Unknown]
  - Palpitations [Unknown]

NARRATIVE: CASE EVENT DATE: 2010
